FAERS Safety Report 9743225 (Version 1)
Quarter: 2013Q4

REPORT INFORMATION
  Report Type: Spontaneous
  Country: US (occurrence: US)
  Receive Date: 20131210
  Receipt Date: 20131210
  Transmission Date: 20140711
  Serious: No
  Sender: FDA-Public Use
  Company Number: US-GILEAD-2009-0025093

PATIENT
  Age: 87 Year
  Sex: Female

DRUGS (8)
  1. LETAIRIS [Suspect]
     Indication: PULMONARY FIBROSIS
     Route: 048
     Dates: start: 20090603
  2. ALBUTEROL [Concomitant]
  3. POLYETHYLENE GLYCOL [Concomitant]
  4. ASPIRIN [Concomitant]
  5. CAPTOPRIL [Concomitant]
  6. FUROSEMIDE [Concomitant]
  7. AMLODIPINE [Concomitant]
  8. DIOVAN [Concomitant]

REACTIONS (1)
  - Oedema peripheral [Recovering/Resolving]
